FAERS Safety Report 6147633-2 (Version None)
Quarter: 2009Q2

REPORT INFORMATION
  Report Type: 
  Country: None (occurrence: None)
  Receive Date: 20090408
  Receipt Date: 20090331
  Transmission Date: 20091009
  Serious: Yes (Other)
  Sender: FDA-Public Use
  Company Number: US-PFIZER INC-2005024822

PATIENT
  Sex: Female

DRUGS (9)
  1. PROVERA [Suspect]
     Indication: HORMONE REPLACEMENT THERAPY
     Dosage: 2.5 MG, UNK
     Route: 065
     Dates: start: 19911101, end: 19931231
  2. PROVERA [Suspect]
     Indication: MENORRHAGIA
  3. PREMARIN [Suspect]
     Indication: HORMONE REPLACEMENT THERAPY
     Dosage: 0.626 MG, UNK
     Dates: start: 19870409, end: 19931231
  4. PREMARIN [Suspect]
     Indication: OVULATION DISORDER
  5. TIMOLOL MALEATE [Concomitant]
     Indication: OCULAR HYPERTENSION
     Dosage: UNK
     Dates: start: 20051101
  6. MIACALCIN [Concomitant]
     Indication: OSTEOPOROSIS
     Dosage: 200 IU, UNK
     Dates: start: 19980101
  7. SUCRALFATE [Concomitant]
     Indication: GASTROOESOPHAGEAL REFLUX DISEASE
     Dosage: 1 G, 2X/DAY
     Dates: start: 20060101
  8. RANITIDINE [Concomitant]
     Indication: GASTROOESOPHAGEAL REFLUX DISEASE
     Dosage: 300 MG, UNK
     Dates: start: 20010801
  9. PAMIDRONATE DISODIUM [Concomitant]
     Indication: OSTEOPOROSIS
     Dosage: UNK
     Dates: start: 20040811

REACTIONS (1)
  - BREAST CANCER FEMALE [None]
